FAERS Safety Report 11056301 (Version 1)
Quarter: 2015Q2

REPORT INFORMATION
  Report Type: Report from Study
  Country: US (occurrence: US)
  Receive Date: 20150422
  Receipt Date: 20150422
  Transmission Date: 20150821
  Serious: Yes (Hospitalization, Other)
  Sender: FDA-Public Use
  Company Number: US-TEVA-555759USA

PATIENT
  Age: 55 Year
  Sex: Male

DRUGS (1)
  1. COPAXONE [Suspect]
     Active Substance: GLATIRAMER ACETATE
     Indication: MULTIPLE SCLEROSIS
     Route: 065
     Dates: start: 20141205

REACTIONS (11)
  - Dyspnoea [Unknown]
  - Chest pain [Unknown]
  - Hyperhidrosis [Unknown]
  - Cyanosis [Unknown]
  - Pallor [Unknown]
  - Pulse abnormal [Unknown]
  - Presyncope [Unknown]
  - Nausea [Unknown]
  - Hypotension [Unknown]
  - Immediate post-injection reaction [Unknown]
  - Abdominal pain upper [Unknown]

NARRATIVE: CASE EVENT DATE: 20150413
